FAERS Safety Report 6846123-9 (Version None)
Quarter: 2010Q3

REPORT INFORMATION
  Report Type: 
  Country: None (occurrence: None)
  Receive Date: 20100715
  Receipt Date: 20080314
  Transmission Date: 20110219
  Serious: No
  Sender: FDA-Public Use
  Company Number: US-PFIZER INC-2007074304

PATIENT
  Sex: Male
  Weight: 90.3 kg

DRUGS (21)
  1. CHANTIX [Suspect]
     Indication: SMOKING CESSATION THERAPY
     Route: 048
     Dates: start: 20070824
  2. CHANTIX [Suspect]
     Indication: TOBACCO ABUSE
  3. SALBUTAMOL [Concomitant]
     Route: 048
  4. COMBIVENT [Concomitant]
     Dosage: 2 PUFFS FOUR TIMES DAILY
  5. CLARITIN [Concomitant]
     Indication: MULTIPLE ALLERGIES
  6. NASONEX [Concomitant]
  7. NASALCROM [Concomitant]
  8. AVODART [Concomitant]
  9. ZETIA [Concomitant]
  10. DIOVAN HCT [Concomitant]
     Dosage: 160/25MG DAILY
  11. ALL OTHER THERAPEUTIC PRODUCTS [Concomitant]
  12. FLONASE [Concomitant]
     Dosage: ONE PUFF TWICE DAILY
     Dates: end: 20050606
  13. ATIVAN [Concomitant]
  14. ZOLOFT [Concomitant]
     Dosage: 1/2 AT BEDTIME
  15. ALLEGRA [Concomitant]
     Dates: end: 20050901
  16. CLONAZEPAM [Concomitant]
     Dosage: 1/2 - 1 EVERY NIGHT AT BEDTIME AS NEEDED
  17. AMBIEN [Concomitant]
     Dosage: 5MG AT BEDTIME AS NEEDED
  18. QVAR 40 [Concomitant]
  19. PREVACID [Concomitant]
  20. WELLBUTRIN [Concomitant]
  21. ADVAIR DISKUS 100/50 [Concomitant]
     Dosage: 250/50MG TWICE A DAY
     Dates: end: 20050606

REACTIONS (4)
  - BALANCE DISORDER [None]
  - DIZZINESS [None]
  - HYPERSENSITIVITY [None]
  - NAUSEA [None]
